FAERS Safety Report 22668609 (Version 4)
Quarter: 2024Q1

REPORT INFORMATION
  Report Type: Report from Study
  Country: US (occurrence: US)
  Receive Date: 20230704
  Receipt Date: 20240201
  Transmission Date: 20240410
  Serious: Yes (Hospitalization, Other)
  Sender: FDA-Public Use
  Company Number: US-ABBVIE-5310037

PATIENT
  Sex: Male
  Weight: 122 kg

DRUGS (8)
  1. IMBRUVICA [Suspect]
     Active Substance: IBRUTINIB
     Indication: Chronic lymphocytic leukaemia
     Route: 048
     Dates: start: 202309, end: 202310
  2. IMBRUVICA [Suspect]
     Active Substance: IBRUTINIB
     Indication: Chronic lymphocytic leukaemia
     Route: 048
     Dates: start: 202305, end: 202307
  3. ACETAMINOPHEN [Concomitant]
     Active Substance: ACETAMINOPHEN
     Indication: Pain
     Dosage: 325 MG TABLET?2 TABLETS BY MOUTH EVERY 6 (SIX)
  4. CALCIUM CARBONATE [Concomitant]
     Active Substance: CALCIUM CARBONATE
     Indication: Product used for unknown indication
     Dosage: 500 MG CHEWABLE TABLET
  5. ACYCLOVIR [Concomitant]
     Active Substance: ACYCLOVIR
     Indication: Product used for unknown indication
     Dosage: 400 MG TABLET?1 TABLET (400 MG TOTAL) BY MOUTH DAILY
  6. ALLOPURINOL [Concomitant]
     Active Substance: ALLOPURINOL
     Indication: Product used for unknown indication
     Dosage: 300 MG TABLET?1 TABLET (300 MG TOTAL) BY MOUTH DAILY
  7. ATORVASTATIN [Concomitant]
     Active Substance: ATORVASTATIN
     Indication: Product used for unknown indication
     Dosage: 10 MG TABLET?1 TABLET (10 MG TOTAL) BY MOUTH DAILY
  8. COLCHICINE [Concomitant]
     Active Substance: COLCHICINE
     Indication: Product used for unknown indication
     Dosage: 0.6 MG TABLET?1 TABLET (0.6 MG TOTAL) BY MOUTH DAILY

REACTIONS (12)
  - Foot fracture [Recovered/Resolved]
  - Blood sodium decreased [Unknown]
  - Dizziness [Unknown]
  - Diarrhoea [Unknown]
  - Blood potassium decreased [Unknown]
  - Chronic lymphocytic leukaemia [Unknown]
  - Unevaluable event [Recovered/Resolved]
  - Fall [Unknown]
  - Gout [Recovered/Resolved]
  - Gait inability [Recovering/Resolving]
  - Blood electrolytes abnormal [Unknown]
  - Peripheral swelling [Recovered/Resolved]

NARRATIVE: CASE EVENT DATE: 20230101
